FAERS Safety Report 7216914-3 (Version None)
Quarter: 2010Q4

REPORT INFORMATION
  Report Type: 
  Country: None (occurrence: None)
  Receive Date: 20101229
  Receipt Date: 20101216
  Transmission Date: 20110411
  Serious: Yes (Hospitalization, Other)
  Sender: FDA-Public Use
  Company Number: 2010SP041674

PATIENT
  Age: 29 Year
  Sex: Female
  Weight: 72 kg

DRUGS (3)
  1. MERCILON CONTI (DESOGESTREL/ETHINYLESTRADIOL /00570801/) [Suspect]
     Indication: CONTRACEPTION
     Dosage: PO ; PO
     Route: 048
     Dates: start: 20100101, end: 20100301
  2. MERCILON CONTI (DESOGESTREL/ETHINYLESTRADIOL /00570801/) [Suspect]
     Indication: CONTRACEPTION
     Dosage: PO ; PO
     Route: 048
     Dates: start: 20010701, end: 20101116
  3. NIMESULIDE (OTHER MFR) (NIMESULIDE /00845801/) [Suspect]
     Indication: TENDONITIS
     Dosage: PO
     Route: 048
     Dates: start: 20100726, end: 20100802

REACTIONS (7)
  - ABORTION INDUCED [None]
  - BLIGHTED OVUM [None]
  - DRUG EXPOSURE DURING PREGNANCY [None]
  - DRUG INTERACTION [None]
  - PREGNANCY ON ORAL CONTRACEPTIVE [None]
  - TENDONITIS [None]
  - WEIGHT INCREASED [None]
